FAERS Safety Report 5083116-9 (Version None)
Quarter: 2006Q3

REPORT INFORMATION
  Report Type: 
  Country: None (occurrence: None)
  Receive Date: 20060720
  Receipt Date: 20060509
  Transmission Date: 20061208
  Serious: Yes (Hospitalization, Disabling)
  Sender: FDA-Public Use
  Company Number: 2006063119

PATIENT
  Age: 56 Year
  Sex: Male
  Weight: 102.0593 kg

DRUGS (1)
  1. CELEBREX [Suspect]
     Indication: OSTEOARTHRITIS
     Dates: start: 19990101, end: 19990901

REACTIONS (5)
  - BLOOD CHOLESTEROL INCREASED [None]
  - BLOOD TRIGLYCERIDES INCREASED [None]
  - CEREBROVASCULAR ACCIDENT [None]
  - HYPERTENSION [None]
  - SPEECH DISORDER [None]
